FAERS Safety Report 5818440-2 (Version None)
Quarter: 2008Q3

REPORT INFORMATION
  Report Type: 
  Country: None (occurrence: None)
  Receive Date: 20080716
  Receipt Date: 20080702
  Transmission Date: 20090109
  Serious: Yes (Hospitalization)
  Sender: FDA-Public Use
  Company Number: 8033838

PATIENT
  Sex: Female

DRUGS (3)
  1. KEPPRA [Suspect]
  2. KEPPRA [Suspect]
     Dosage: 6000 MG /D;
  3. KEPPRA [Suspect]

REACTIONS (4)
  - ALTERED STATE OF CONSCIOUSNESS [None]
  - BACTERIAL INFECTION [None]
  - EPILEPSY [None]
  - URINE ANALYSIS ABNORMAL [None]
